FAERS Safety Report 8766705 (Version 4)
Quarter: 2013Q1

REPORT INFORMATION
  Report Type: Report from Study
  Country: JP (occurrence: JP)
  Receive Date: 20120904
  Receipt Date: 20130328
  Transmission Date: 20140127
  Serious: Yes (Hospitalization, Other)
  Sender: FDA-Public Use
  Company Number: JP-VERTEX PHARMACEUTICAL INC.-AE-2012-007324

PATIENT
  Age: 64 Year
  Sex: Male

DRUGS (37)
  1. VX-950 (TELAPREVIR) [Suspect]
     Indication: CHRONIC HEPATITIS C
     Dosage: 2250 MG, QD
     Route: 048
     Dates: start: 20120319, end: 20120430
  2. VX-950 (TELAPREVIR) [Suspect]
     Dosage: 1500 MG, QD
     Route: 048
     Dates: start: 20120501, end: 20120506
  3. VX-950 (TELAPREVIR) [Suspect]
     Dosage: 750 MG, QD
     Route: 048
     Dates: start: 20120507, end: 20120514
  4. REBETOL [Suspect]
     Indication: CHRONIC HEPATITIS C
     Dosage: 800 MG, QD
     Route: 048
     Dates: start: 20120319, end: 20120514
  5. REBETOL [Suspect]
     Dosage: 400 MG, QD
     Route: 048
     Dates: start: 20120611
  6. PREDONINE [Suspect]
     Indication: ADVERSE EVENT
     Dosage: 30 MG, QD
     Route: 051
     Dates: start: 20120321, end: 20120323
  7. PREDONINE [Suspect]
     Dosage: 30 MG, QD
     Route: 048
     Dates: start: 20120324, end: 20120326
  8. PREDONINE [Suspect]
     Dosage: 20 MG, QD
     Route: 048
     Dates: start: 20120327, end: 20120329
  9. PREDONINE [Suspect]
     Dosage: 15 MG, QD
     Route: 048
     Dates: start: 20120330, end: 20120401
  10. PREDONINE [Suspect]
     Dosage: 10 MG, QD
     Route: 048
     Dates: start: 20120402, end: 20120409
  11. PREDONINE [Suspect]
     Dosage: 7.5 MG, QD
     Route: 048
     Dates: start: 20120410, end: 20120416
  12. PREDONINE [Suspect]
     Dosage: 5 MG, QD
     Route: 048
     Dates: start: 20120417, end: 20120423
  13. PREDONINE [Suspect]
     Dosage: 7.5 MG, QD
     Route: 048
     Dates: start: 20120424, end: 20120520
  14. PREDONINE [Suspect]
     Dosage: 5 MG, QD
     Route: 048
     Dates: start: 20120521, end: 20120527
  15. PREDONINE [Suspect]
     Dosage: 2 MG, QD
     Route: 048
     Dates: start: 20120528, end: 20120530
  16. PEGINTRON [Concomitant]
     Dosage: 1.5 ?G/KG, QW
     Route: 058
     Dates: start: 20120319
  17. CALBLOCK [Concomitant]
     Dosage: 16 MG, QD
     Route: 048
     Dates: start: 20110530, end: 20120501
  18. BLOPRESS [Concomitant]
     Dosage: 12 MG, QD
     Route: 048
     Dates: start: 20120202, end: 20120415
  19. BLOPRESS [Concomitant]
     Dosage: 8 MG, QD
     Route: 048
     Dates: start: 20120416, end: 20120528
  20. BLOPRESS [Concomitant]
     Dosage: 8 MG, QD
     Route: 048
     Dates: start: 20120529
  21. BLADDERON [Concomitant]
     Dosage: 200 MG, QD
     Route: 048
     Dates: start: 20100222, end: 20120408
  22. BLADDERON [Concomitant]
     Dosage: 200 MG, QD
     Route: 048
     Dates: start: 20120410, end: 20120412
  23. NAUZELIN [Concomitant]
     Dosage: 30 MG, QD
     Route: 048
     Dates: start: 20120319, end: 20120624
  24. ALLELOCK [Concomitant]
     Dosage: 10 MG, QD
     Route: 048
     Dates: start: 20120319, end: 20120402
  25. URSO [Concomitant]
     Dosage: 400 MG, QD
     Route: 048
     Dates: start: 20120416, end: 20120514
  26. LACTEC [Concomitant]
     Dosage: 2000 ML, QD
     Route: 042
     Dates: start: 20120409, end: 20120410
  27. HUMULIN R [Concomitant]
     Dosage: 24 DF, QD
     Route: 042
     Dates: start: 20120409, end: 20120409
  28. HUMULIN R [Concomitant]
     Dosage: 14 DF, QD
     Route: 058
     Dates: start: 20120409, end: 20120409
  29. HUMULIN R [Concomitant]
     Dosage: 22 DF, QD
     Route: 058
     Dates: start: 20120410, end: 20120410
  30. HUMULIN R [Concomitant]
     Dosage: 16 DF, QD
     Route: 058
     Dates: start: 20120411, end: 20120411
  31. HUMULIN R [Concomitant]
     Dosage: 14 DF, QD
     Route: 058
     Dates: start: 20120412, end: 20120412
  32. JANUVIA [Concomitant]
     Dosage: 50 MG, QD
     Route: 048
     Dates: start: 20120410, end: 20120624
  33. AMARYL [Concomitant]
     Dosage: 1 MG, QD
     Route: 048
     Dates: start: 20120410, end: 20120528
  34. EVIPROSTAT N [Concomitant]
     Dosage: 2 DF, QD
     Route: 048
     Dates: start: 20120410, end: 20120412
  35. URIEF [Concomitant]
     Dosage: 8 MG, QD
     Route: 048
     Dates: start: 20120410, end: 20120412
  36. TAKEPRON [Concomitant]
     Dosage: 30 MG, QD
     Route: 048
     Dates: start: 20120416
  37. FLIVAS [Concomitant]
     Dosage: 15 MG, QD
     Route: 048
     Dates: start: 20111128, end: 20120408

REACTIONS (3)
  - Diabetes mellitus [Not Recovered/Not Resolved]
  - Renal impairment [Not Recovered/Not Resolved]
  - Anaemia [Not Recovered/Not Resolved]
